FAERS Safety Report 7369642-8 (Version None)
Quarter: 2011Q1

REPORT INFORMATION
  Report Type: 
  Country: None (occurrence: None)
  Receive Date: 20110323
  Receipt Date: 20110318
  Transmission Date: 20110831
  Serious: Yes (Hospitalization)
  Sender: FDA-Public Use
  Company Number: US-PFIZER INC-2011061297

PATIENT
  Sex: Male
  Weight: 99.9 kg

DRUGS (9)
  1. LOVENOX [Concomitant]
     Dosage: UNK
  2. EMEND [Concomitant]
  3. OMEPRAZOLE [Concomitant]
     Dosage: UNK
  4. ONDANSETRON [Concomitant]
     Dosage: UNK
  5. SENNA ALEXANDRINA [Concomitant]
     Dosage: UNK
  6. DOXORUBICIN HCL [Suspect]
     Indication: SARCOMA
     Dosage: 180 MG, UNK
     Route: 042
     Dates: start: 20101116
  7. PEGFILGRASTIM [Concomitant]
     Dosage: UNK
     Dates: start: 20110301
  8. DEXRAZOXANE [Suspect]
     Indication: SARCOMA
     Dosage: 1800 MG, UNK
     Route: 042
     Dates: start: 20110208
  9. PDGFRA [Suspect]
     Indication: SARCOMA
     Dosage: 1500 MG, UNK
     Route: 042
     Dates: start: 20101116, end: 20110301

REACTIONS (1)
  - FEBRILE NEUTROPENIA [None]
